FAERS Safety Report 6504870-2 (Version None)
Quarter: 2009Q4

REPORT INFORMATION
  Report Type: 
  Country: None (occurrence: None)
  Receive Date: 20091201
  Receipt Date: 20090826
  Transmission Date: 20100525
  Serious: Yes (Hospitalization)
  Sender: FDA-Public Use
  Company Number: 2009-200464-NL

PATIENT
  Age: 31 Year
  Sex: Female
  Weight: 72.5755 kg

DRUGS (9)
  1. NUVARING [Suspect]
     Indication: CONTRACEPTION
     Dates: start: 20071201, end: 20080301
  2. NUVARING [Suspect]
     Indication: OFF LABEL USE
     Dates: start: 20071201, end: 20080301
  3. XANAX [Concomitant]
  4. ADVIL [Concomitant]
  5. SKELAXIN [Concomitant]
  6. AMOXICILLIN [Concomitant]
  7. BACLOFEN [Concomitant]
  8. LEXAPRO [Concomitant]
  9. NORCO [Concomitant]

REACTIONS (1)
  - PULMONARY EMBOLISM [None]
